FAERS Safety Report 4941237-2 (Version None)
Quarter: 2006Q1

REPORT INFORMATION
  Report Type: 
  Country: None (occurrence: None)
  Receive Date: 20060313
  Receipt Date: 20051124
  Transmission Date: 20060701
  Serious: Yes (Other)
  Sender: FDA-Public Use
  Company Number: PHBS2005JP17529

PATIENT
  Age: 43 Year
  Sex: Female

DRUGS (12)
  1. GLEEVEC [Suspect]
     Indication: CHRONIC MYELOID LEUKAEMIA
     Dosage: 300 MG/DAY
     Route: 048
     Dates: start: 20040501
  2. LASIX [Concomitant]
     Indication: RENAL FAILURE
     Dosage: 120 MG/DAY
     Dates: start: 20000101
  3. LIPITOR [Concomitant]
     Dosage: 20 MG/DAY
  4. GLEEVEC [Suspect]
     Dosage: 300 MG/DAY
     Route: 048
     Dates: start: 20051018
  5. PREDNISOLONE [Concomitant]
     Indication: IMMUNODEFICIENCY COMMON VARIABLE
     Dosage: 15 MG/D
     Route: 048
     Dates: start: 19910101
  6. ZYLORIC [Concomitant]
     Indication: CHRONIC MYELOID LEUKAEMIA
     Dosage: 50 MG/D
     Route: 048
     Dates: start: 20040601
  7. ALDACTONE [Concomitant]
     Indication: RENAL FAILURE
     Dosage: 75 MG/D
     Route: 048
     Dates: start: 20000101
  8. THEO-DUR [Concomitant]
     Indication: ASTHMA
     Dosage: 200 MG/D
     Route: 048
     Dates: start: 20000101
  9. COTRIM [Concomitant]
     Indication: IMMUNODEFICIENCY COMMON VARIABLE
     Dosage: 2 G/D
     Route: 048
     Dates: start: 19910101
  10. FUNGUARD [Concomitant]
     Indication: FUNGAL INFECTION
     Dosage: 200 MG/D
     Route: 041
     Dates: start: 20031201
  11. MEROPEN [Concomitant]
     Indication: BACTERIAL INFECTION
     Dosage: 1 G/D
     Route: 041
     Dates: start: 20050905, end: 20051130
  12. CARBENIN [Concomitant]
     Indication: BACTERIAL INFECTION
     Dosage: 700 MG/D
     Route: 041
     Dates: start: 20051130

REACTIONS (15)
  - BACTERIAL INFECTION [None]
  - BLADDER INJURY [None]
  - BLOOD URINE PRESENT [None]
  - BOWEL SOUNDS ABNORMAL [None]
  - BRONCHITIS [None]
  - FACE OEDEMA [None]
  - HYPOKALAEMIA [None]
  - MALAISE [None]
  - NAUSEA [None]
  - OEDEMA [None]
  - OEDEMA PERIPHERAL [None]
  - OLIGURIA [None]
  - PYREXIA [None]
  - VOMITING [None]
  - WEIGHT INCREASED [None]
